FAERS Safety Report 7412236-6 (Version None)
Quarter: 2011Q2

REPORT INFORMATION
  Report Type: 
  Country: None (occurrence: None)
  Receive Date: 20110408
  Receipt Date: 20110408
  Transmission Date: 20111010
  Serious: Yes (Other)
  Sender: FDA-Public Use
  Company Number: None

PATIENT
  Age: 63 Year
  Sex: Female
  Weight: 89.8122 kg

DRUGS (1)
  1. ZOLPIDEM 12.5 MG ANCHEN PHA [Suspect]
     Dates: start: 20110311, end: 20110312

REACTIONS (2)
  - PRODUCT SUBSTITUTION ISSUE [None]
  - PALPITATIONS [None]
